FAERS Safety Report 10159206 (Version 1)
Quarter: 2014Q2

REPORT INFORMATION
  Report Type: Spontaneous
  Country: US (occurrence: None)
  Receive Date: 20140507
  Receipt Date: 20140507
  Transmission Date: 20141212
  Serious: Yes (Hospitalization)
  Sender: FDA-Public Use
  Company Number: None

PATIENT
  Age: 36 Year
  Sex: Female
  Weight: 84.1 kg

DRUGS (1)
  1. INTRON A [Suspect]
     Dates: start: 20120928

REACTIONS (1)
  - Hypophosphataemia [None]
